FAERS Safety Report 4828418-3 (Version None)
Quarter: 2005Q4

REPORT INFORMATION
  Report Type: 
  Country: None (occurrence: None)
  Receive Date: 20051115
  Receipt Date: 20050803
  Transmission Date: 20060501
  Serious: Yes (Hospitalization, Other)
  Sender: FDA-Public Use
  Company Number: US-MERCK-0508USA01243

PATIENT
  Age: 67 Year
  Sex: Male
  Weight: 75 kg

DRUGS (5)
  1. VIOXX [Suspect]
     Indication: ARTHROPATHY
     Route: 048
     Dates: start: 19991001, end: 20000422
  2. HYZAAR [Concomitant]
     Route: 048
  3. SAW PALMETTO [Concomitant]
     Route: 065
  4. CYCLOBENZAPRINE HYDROCHLORIDE [Concomitant]
     Route: 048
  5. TYLENOL (CAPLET) [Concomitant]
     Indication: HEADACHE
     Route: 065

REACTIONS (2)
  - BACK DISORDER [None]
  - CEREBROVASCULAR ACCIDENT [None]
